APPROVED DRUG PRODUCT: VANCOMYCIN HYDROCHLORIDE
Active Ingredient: VANCOMYCIN HYDROCHLORIDE
Strength: EQ 100GM BASE
Dosage Form/Route: POWDER;INTRAVENOUS
Application: A091532 | Product #001
Applicant: SAMSON MEDICAL TECHNOLOGIES LLC
Approved: Jan 6, 2016 | RLD: No | RS: Yes | Type: RX